FAERS Safety Report 5061253-2 (Version None)
Quarter: 2006Q3

REPORT INFORMATION
  Report Type: 
  Country: None (occurrence: None)
  Receive Date: 20060720
  Receipt Date: 20060710
  Transmission Date: 20061208
  Serious: Yes (Hospitalization, Disabling, Other)
  Sender: FDA-Public Use
  Company Number: 2006082349

PATIENT
  Age: 59 Year
  Sex: Female
  Weight: 50.6 kg

DRUGS (8)
  1. LYRICA [Suspect]
     Indication: EPILEPSY
     Dosage: 100 MG (50 MG, 2 IN 1 D); ORAL
     Route: 048
     Dates: start: 20060525, end: 20060612
  2. ACETAMINOPHEN [Concomitant]
  3. PHOSPHATES ENEMA [Concomitant]
  4. LIPITOR [Concomitant]
  5. LAXOBERAL (SODIUM PICOSULFATE) [Concomitant]
  6. CALCICHEW-D3 (CALCIUM CARBONATE, COLECALCIFEROL) [Concomitant]
  7. SERTRALINE [Concomitant]
  8. LEVOTHYROXINE SODIUM [Concomitant]

REACTIONS (4)
  - ABASIA [None]
  - COORDINATION ABNORMAL [None]
  - DISORIENTATION [None]
  - SOMNOLENCE [None]
